FAERS Safety Report 7975964 (Version 2)
Quarter: 2012Q4

REPORT INFORMATION
  Report Type: 
  Country: US (occurrence: US)
  Receive Date: 20110606
  Receipt Date: 20121127
  Transmission Date: 20130627
  Serious: Yes (Other)
  Sender: FDA-Public Use
  Company Number: US-PFIZER INC-2011120387

PATIENT
  Sex: Male

DRUGS (2)
  1. LYRICA [Suspect]
     Indication: NEUROPATHY
     Dosage: UNK
     Route: 048
  2. LYRICA [Suspect]
     Dosage: 50 mg, dailly

REACTIONS (1)
  - Spinal laminectomy [Unknown]
